FAERS Safety Report 6697729-1 (Version None)
Quarter: 2010Q2

REPORT INFORMATION
  Report Type: 
  Country: None (occurrence: None)
  Receive Date: 20100423
  Receipt Date: 20100324
  Transmission Date: 20101027
  Serious: Yes (Death, Hospitalization, Other)
  Sender: FDA-Public Use
  Company Number: MOZO-1000289

PATIENT
  Age: 63 Year
  Sex: Male
  Weight: 85.2 kg

DRUGS (21)
  1. MOZOBIL [Suspect]
     Indication: HAEMATOPOIETIC STEM CELL MOBILISATION
     Dosage: 6400 MCG, QD
     Dates: start: 20090812, end: 20090815
  2. THYMOGLOBULIN [Concomitant]
  3. GRANULOCYTE COLONY STIMULATING FACTOR (GRANULOCYTE COLONY STIMULATING [Concomitant]
  4. FLUDARABINE PHOSPHATE [Concomitant]
  5. BUSULFAN (BUSULFAN) [Concomitant]
  6. AMBIEN [Concomitant]
  7. ATIVAN [Concomitant]
  8. BACLOFEN [Concomitant]
  9. COMPAZINE [Concomitant]
  10. LEVETIRACETAM [Concomitant]
  11. MEGESTROL ACETATE [Concomitant]
  12. METOPROLOL (METOPROLOL) [Concomitant]
  13. METRONIDAZOLE [Concomitant]
  14. NEXIAM (ESOMEPRAZOLE) [Concomitant]
  15. PAROXETINE HCL [Concomitant]
  16. PENTAMIDINE (PENTAMIDINE) [Concomitant]
  17. PROPOXYPHENE HCL [Concomitant]
  18. TACROLIMUS [Concomitant]
  19. TOLTERODINE TARTRATE [Concomitant]
  20. VALTREX [Concomitant]
  21. VFEND [Concomitant]

REACTIONS (6)
  - ACUTE MYELOID LEUKAEMIA [None]
  - BK VIRUS INFECTION [None]
  - CLOSTRIDIAL INFECTION [None]
  - ENCEPHALOPATHY [None]
  - HYPERTENSION [None]
  - INFECTION [None]
